FAERS Safety Report 17923000 (Version 2)
Quarter: 2020Q2

REPORT INFORMATION
  Report Type: Spontaneous
  Country: BR (occurrence: BR)
  Receive Date: 20200622
  Receipt Date: 20200623
  Transmission Date: 20200714
  Serious: No
  Sender: FDA-Public Use
  Company Number: BR-009507513-2006BRA007602

PATIENT
  Age: 95 Year
  Sex: Male

DRUGS (1)
  1. CUBICIN [Suspect]
     Active Substance: DAPTOMYCIN
     Indication: PNEUMONIA
     Dosage: UNK
     Dates: start: 20191217, end: 2020

REACTIONS (2)
  - Ill-defined disorder [Unknown]
  - Pneumonitis [Unknown]

NARRATIVE: CASE EVENT DATE: 20200106
